FAERS Safety Report 25153924 (Version 2)
Quarter: 2025Q2

REPORT INFORMATION
  Report Type: Spontaneous
  Country: US (occurrence: US)
  Receive Date: 20250403
  Receipt Date: 20250423
  Transmission Date: 20250717
  Serious: No
  Sender: DR REDDYS
  Company Number: US-DRL-USA-USA/2025/03/004773

PATIENT
  Age: 30 Year

DRUGS (2)
  1. ZENATANE [Suspect]
     Active Substance: ISOTRETINOIN
     Indication: Product used for unknown indication
     Route: 048
     Dates: start: 20250101
  2. CLARAVIS [Suspect]
     Active Substance: ISOTRETINOIN
     Indication: Product used for unknown indication
     Route: 065

REACTIONS (1)
  - Product dispensing error [Unknown]

NARRATIVE: CASE EVENT DATE: 20250321
